FAERS Safety Report 5884039-5 (Version None)
Quarter: 2008Q3

REPORT INFORMATION
  Report Type: 
  Country: None (occurrence: None)
  Receive Date: 20080911
  Receipt Date: 20080901
  Transmission Date: 20090109
  Serious: Yes (Hospitalization)
  Sender: FDA-Public Use
  Company Number: 2008-183137-NL

PATIENT
  Sex: Male

DRUGS (4)
  1. NUVARING [Suspect]
  2. NITROFURANTOIN [Concomitant]
  3. SULFASALAZINE [Concomitant]
  4. TRIAZOLAM [Concomitant]

REACTIONS (2)
  - MATERNAL DRUGS AFFECTING FOETUS [None]
  - PNEUMOTHORAX [None]
